FAERS Safety Report 21421686 (Version 1)
Quarter: 2022Q4

REPORT INFORMATION
  Report Type: Spontaneous
  Country: FR (occurrence: FR)
  Receive Date: 20221007
  Receipt Date: 20221007
  Transmission Date: 20230113
  Serious: Yes (Hospitalization)
  Sender: FDA-Public Use
  Company Number: None

PATIENT
  Age: 75 Year
  Sex: Male
  Weight: 80 kg

DRUGS (3)
  1. ALLOPURINOL [Suspect]
     Active Substance: ALLOPURINOL
     Indication: Hyperuricaemia
     Dosage: UNIT DOSE: 200 MG, FREQ TIME: 1 DAY, DURATION 153 DAYS
     Route: 065
     Dates: start: 20220121, end: 20220623
  2. KINERET [Suspect]
     Active Substance: ANAKINRA
     Indication: Product used for unknown indication
     Dosage: UNIT DOSE: 100 MG, FREQ TIME: 1 DAY, DURATION 14 DAYS
     Route: 065
     Dates: start: 20220609, end: 20220623
  3. ISONIAZID\RIFAMPIN [Suspect]
     Active Substance: ISONIAZID\RIFAMPIN
     Indication: Latent tuberculosis
     Dosage: RIFINAH 300 MG/150 MG
     Dates: start: 20220507, end: 20220623

REACTIONS (2)
  - Agranulocytosis [Recovered/Resolved]
  - Hepatic cytolysis [Recovered/Resolved]

NARRATIVE: CASE EVENT DATE: 20220601
